FAERS Safety Report 7948183-0 (Version None)
Quarter: 2011Q4

REPORT INFORMATION
  Report Type: 
  Country: None (occurrence: None)
  Receive Date: 20111125
  Receipt Date: 20111114
  Transmission Date: 20120403
  Serious: Yes (Hospitalization, Other)
  Sender: FDA-Public Use
  Company Number: 2011110049

PATIENT
  Age: 70 Year
  Weight: 95.2554 kg

DRUGS (3)
  1. TEGRETOL-XR [Suspect]
     Indication: EPILEPSY
     Dosage: ORAL
     Route: 048
  2. FELBATOL [Suspect]
     Indication: EPILEPSY
     Dosage: 1800 MG (600 MG,3 IN 1 D),ORAL
     Route: 048
  3. PLAVIX [Concomitant]

REACTIONS (5)
  - SIMPLE PARTIAL SEIZURES [None]
  - POOR QUALITY DRUG ADMINISTERED [None]
  - PRODUCT QUALITY ISSUE [None]
  - FALL [None]
  - TRANSIENT ISCHAEMIC ATTACK [None]
